FAERS Safety Report 8028609 (Version 6)
Quarter: 2012Q4

REPORT INFORMATION
  Report Type: 
  Country: US (occurrence: US)
  Receive Date: 20110711
  Receipt Date: 20121029
  Transmission Date: 20130627
  Serious: Yes (Other)
  Sender: FDA-Public Use
  Company Number: US-ROCHE-788000

PATIENT
  Age: 18 Year
  Sex: Female
  Weight: 58.11 kg

DRUGS (2)
  1. ACCUTANE [Suspect]
     Indication: ACNE
     Dosage: 60 mg in morning and 40 mg in evening
     Route: 048
     Dates: start: 20000623, end: 20010104
  2. ACCUTANE [Suspect]
     Indication: ACNE CYSTIC

REACTIONS (15)
  - Injury [Unknown]
  - Colitis [Unknown]
  - Irritable bowel syndrome [Unknown]
  - Depression [Unknown]
  - Blindness [Unknown]
  - Alopecia [Unknown]
  - Tooth repair [Unknown]
  - Alopecia [Unknown]
  - Joint injury [Unknown]
  - Blood triglycerides increased [Unknown]
  - Myalgia [Unknown]
  - Arthralgia [Unknown]
  - Dry skin [Unknown]
  - Cheilitis [Unknown]
  - Arthralgia [Unknown]
